FAERS Safety Report 8704811 (Version 2)
Quarter: 2012Q4

REPORT INFORMATION
  Report Type: Report from Study
  Country: JP (occurrence: JP)
  Receive Date: 20120803
  Receipt Date: 20120904
  Transmission Date: 20130627
  Serious: Yes (Hospitalization)
  Sender: FDA-Public Use
  Company Number: JP-009507513-1207JPN012624

PATIENT

DRUGS (7)
  1. PEGINTRON [Suspect]
     Indication: HEPATITIS C
     Dosage: 1.5 Microgram per kilogram, qw
     Route: 058
     Dates: start: 20120614
  2. REBETOL [Suspect]
     Indication: HEPATITIS C
     Dosage: 600 mg, qd (morning 200, evening 400)
     Route: 048
     Dates: start: 20120614
  3. TELAVIC [Suspect]
     Indication: HEPATITIS C
     Dosage: 1500,mg, qd
     Route: 048
     Dates: start: 20120614
  4. URSO [Concomitant]
     Indication: HEPATITIS C
     Dosage: 600 mg, qd
     Route: 048
  5. LOXONIN [Concomitant]
     Route: 048
  6. METHADERM [Concomitant]
     Dosage: UNK, bid
     Dates: start: 20120623
  7. METHADERM [Concomitant]
     Dosage: UNK
     Dates: start: 20120628

REACTIONS (2)
  - Blood uric acid increased [Recovered/Resolved]
  - Rash [Recovering/Resolving]
